FAERS Safety Report 9329485 (Version 2)
Quarter: 2013Q3

REPORT INFORMATION
  Report Type: Report from Study
  Country: US (occurrence: US)
  Receive Date: 20130604
  Receipt Date: 20130819
  Transmission Date: 20140515
  Serious: Yes (Hospitalization)
  Sender: FDA-Public Use
  Company Number: US-GLAXOSMITHKLINE-Z0019879A

PATIENT
  Age: 66 Year
  Sex: Female
  Weight: 55.5 kg

DRUGS (8)
  1. TRAMETINIB [Suspect]
     Indication: MALIGNANT MELANOMA
     Dosage: 2MG PER DAY
     Route: 048
     Dates: start: 20130330
  2. DABRAFENIB [Suspect]
     Indication: MALIGNANT MELANOMA
     Dosage: 150MG TWICE PER DAY
     Route: 048
     Dates: start: 20130330
  3. LOVENOX [Concomitant]
     Indication: PROPHYLAXIS
     Dosage: 40MG PER DAY
     Route: 058
     Dates: start: 20130525, end: 20130526
  4. OMEPRAZOLE [Concomitant]
     Indication: PROPHYLAXIS
     Dosage: 20MG PER DAY
     Route: 048
     Dates: start: 20130525, end: 20130526
  5. ZOFRAN [Concomitant]
     Indication: PROPHYLAXIS OF NAUSEA AND VOMITING
     Dosage: 4MG SINGLE DOSE
     Route: 042
     Dates: start: 20130524, end: 20130524
  6. TYLENOL [Concomitant]
     Indication: FEBRILE NEUTROPENIA
     Dosage: 650MG SIX TIMES PER DAY
     Route: 048
     Dates: start: 20130524, end: 20130526
  7. POTASSIUM CHLORIDE [Concomitant]
     Indication: HYPOKALAEMIA
     Dosage: 20MEQ TWICE PER DAY
     Route: 048
     Dates: start: 20130524, end: 20130525
  8. SODIUM CHLORIDE 0.9% [Concomitant]
     Indication: DEHYDRATION
     Dosage: 1000ML PER DAY
     Route: 042
     Dates: start: 20130524, end: 20130525

REACTIONS (1)
  - Febrile neutropenia [Recovered/Resolved]
